FAERS Safety Report 21299402 (Version 1)
Quarter: 2022Q3

REPORT INFORMATION
  Report Type: Spontaneous
  Country: US (occurrence: US)
  Receive Date: 20220906
  Receipt Date: 20220906
  Transmission Date: 20221026
  Serious: Yes (Hospitalization)
  Sender: FDA-Public Use
  Company Number: US-BAYER-2022A123500

PATIENT

DRUGS (3)
  1. GADAVIST [Suspect]
     Active Substance: GADOBUTROL
     Dosage: UNK UNK, ONCE
  2. GADAVIST [Suspect]
     Active Substance: GADOBUTROL
     Dosage: UNK
  3. GADAVIST [Suspect]
     Active Substance: GADOBUTROL
     Dosage: UNK

REACTIONS (1)
  - Pharyngeal swelling [None]
